FAERS Safety Report 12336270 (Version 1)
Quarter: 2016Q2

REPORT INFORMATION
  Report Type: Spontaneous
  Country: US (occurrence: None)
  Receive Date: 20160504
  Receipt Date: 20160504
  Transmission Date: 20160815
  Serious: Yes (Other)
  Sender: FDA-Public Use
  Company Number: None

PATIENT
  Age: 47 Year
  Sex: Female
  Weight: 90.27 kg

DRUGS (2)
  1. MALOCICAM [Concomitant]
  2. DULOXETINE HCL DR 60 MG, 60 MG [Suspect]
     Active Substance: DULOXETINE HYDROCHLORIDE
     Indication: FIBROMYALGIA
     Route: 048
     Dates: end: 20160430

REACTIONS (9)
  - Weight increased [None]
  - Constipation [None]
  - Abdominal distension [None]
  - Pain [None]
  - Drug withdrawal syndrome [None]
  - Headache [None]
  - Lethargy [None]
  - Mood swings [None]
  - Nausea [None]

NARRATIVE: CASE EVENT DATE: 20160430
